FAERS Safety Report 21873068 (Version 1)
Quarter: 2023Q1

REPORT INFORMATION
  Report Type: Spontaneous
  Country: US (occurrence: None)
  Receive Date: 20230115
  Receipt Date: 20230115
  Transmission Date: 20230418
  Serious: Yes (Other)
  Sender: FDA-Public Use
  Company Number: None

PATIENT
  Age: 39 Year
  Sex: Female
  Weight: 58.5 kg

DRUGS (5)
  1. MONISTAT 1 COMBINATION PACK [Suspect]
     Active Substance: MICONAZOLE NITRATE
     Indication: Fungal infection
  2. PROPRANOLOL [Concomitant]
     Active Substance: PROPRANOLOL HYDROCHLORIDE
  3. RIZATRIPTAN [Concomitant]
     Active Substance: RIZATRIPTAN
  4. KLONOPIN [Concomitant]
     Active Substance: CLONAZEPAM
  5. MELATONIN [Concomitant]
     Active Substance: MELATONIN

REACTIONS (8)
  - Chemical burn of genitalia [None]
  - Skin disorder [None]
  - Vulvovaginal burning sensation [None]
  - Drug ineffective [None]
  - Skin hyperpigmentation [None]
  - Dysuria [None]
  - Anxiety [None]
  - Stress [None]

NARRATIVE: CASE EVENT DATE: 20221203
